FAERS Safety Report 5200804-1 (Version None)
Quarter: 2006Q4

REPORT INFORMATION
  Report Type: 
  Country: None (occurrence: None)
  Receive Date: 20061016
  Receipt Date: 20060905
  Transmission Date: 20070319
  Serious: No
  Sender: FDA-Public Use
  Company Number: 2006SP003180

PATIENT
  Age: 62 Year
  Sex: Female
  Weight: 58.9676 kg

DRUGS (6)
  1. LUNESTA [Suspect]
     Indication: INSOMNIA
     Dosage: SEE IMAGE
     Route: 048
     Dates: start: 20051001, end: 20060101
  2. LUNESTA [Suspect]
     Indication: INSOMNIA
     Dosage: SEE IMAGE
     Route: 048
     Dates: start: 20060101
  3. LYRICA [Concomitant]
  4. TOPIRAMATE [Concomitant]
  5. WELLBUTRIN [Concomitant]
  6. VITAMIN CAP [Concomitant]

REACTIONS (8)
  - ALOPECIA [None]
  - BURNING SENSATION [None]
  - MIDDLE INSOMNIA [None]
  - NAUSEA [None]
  - NERVOUSNESS [None]
  - PHOTOSENSITIVITY REACTION [None]
  - RASH PAPULAR [None]
  - URTICARIA [None]
